FAERS Safety Report 9087043 (Version 1)
Quarter: 2013Q1

REPORT INFORMATION
  Report Type: Report from Study
  Country: CA (occurrence: CA)
  Receive Date: 20130217
  Receipt Date: 20130217
  Transmission Date: 20140127
  Serious: Yes (Hospitalization)
  Sender: FDA-Public Use
  Company Number: CA-JNJFOC-20130203061

PATIENT
  Age: 43 Year
  Sex: Male

DRUGS (7)
  1. REMICADE [Suspect]
     Indication: CROHN^S DISEASE
     Route: 042
     Dates: start: 2009
  2. AVAPRO [Concomitant]
     Route: 065
  3. VITAMIN D [Concomitant]
     Route: 065
  4. CALCIUM CARBONATE [Concomitant]
     Route: 065
  5. AVALIDE [Concomitant]
     Route: 065
  6. PENTASA [Concomitant]
     Route: 065
  7. VITAMIN B12 [Concomitant]
     Route: 065

REACTIONS (1)
  - Intestinal resection [Unknown]
